FAERS Safety Report 9991626 (Version 1)
Quarter: 2014Q1

REPORT INFORMATION
  Report Type: Spontaneous
  Country: US (occurrence: None)
  Receive Date: 20140123
  Receipt Date: 20140123
  Transmission Date: 20141002
  Serious: Yes (Hospitalization)
  Sender: FDA-Public Use
  Company Number: UTC-039723

PATIENT
  Age: 55 Year
  Sex: Female
  Weight: 108.2 kg

DRUGS (3)
  1. TYVASO (6 MICROGRAM, AEROSOL FOR INHALATION) (TREPROSTINIL SODIUM) [Suspect]
     Indication: PULMONARY ARTERIAL HYPERTENSION
     Dosage: 4 IN 1 D INH.
     Dates: start: 20110318
  2. TRACLEER (BOSENTAN) (UNKNOWN) [Concomitant]
  3. COUMADIN (WARFARIN SODIUM) (UNKNOWN) [Concomitant]

REACTIONS (5)
  - Pneumonia [None]
  - Dyspnoea [None]
  - Somnolence [None]
  - Pulmonary arterial hypertension [None]
  - Dizziness [None]
